FAERS Safety Report 6376023-2 (Version None)
Quarter: 2009Q3

REPORT INFORMATION
  Report Type: 
  Country: None (occurrence: None)
  Receive Date: 20090924
  Receipt Date: 20090916
  Transmission Date: 20100115
  Serious: Yes (Other)
  Sender: FDA-Public Use
  Company Number: PHEH2009US10130

PATIENT
  Sex: Female

DRUGS (13)
  1. AFINITOR [Suspect]
     Indication: RENAL CANCER
     Dosage: 10 MG, UNK
     Route: 048
     Dates: start: 20090826
  2. NOVOLOG [Concomitant]
     Dosage: AFTER MEALS
  3. LANTUS [Concomitant]
     Dosage: UNK
  4. COUMADIN [Concomitant]
     Dosage: 2.5 MG, UNK
  5. SECTRAL [Concomitant]
     Dosage: 400 MG, BID
  6. DEMADEX [Concomitant]
     Dosage: 50 MG, QD
  7. POTASSIUM CHLORIDE [Concomitant]
  8. AMITRIPTYLINE [Concomitant]
     Dosage: 50 MG, QHS
  9. SANDOSTATIN LAR [Concomitant]
  10. SANDOSTATIN [Concomitant]
     Dosage: UP TO 3 SHOTS DAILY
  11. LOTENSIN [Concomitant]
     Dosage: 20 MG, BID
  12. PRILOSEC [Concomitant]
     Dosage: 20 MG, QD
  13. ROBAXIN [Concomitant]

REACTIONS (4)
  - ASTHENIA [None]
  - DIZZINESS [None]
  - FATIGUE [None]
  - HYPOGLYCAEMIA [None]
